FAERS Safety Report 5412128-8 (Version None)
Quarter: 2007Q3

REPORT INFORMATION
  Report Type: 
  Country: None (occurrence: None)
  Receive Date: 20070808
  Receipt Date: 20070725
  Transmission Date: 20080115
  Serious: Yes (Hospitalization)
  Sender: FDA-Public Use
  Company Number: 8025752

PATIENT
  Age: 58 Year
  Sex: Male

DRUGS (5)
  1. KEPPRA [Suspect]
     Indication: EPILEPSY
     Dosage: 3 G /D PO
     Route: 048
     Dates: start: 20070701, end: 20070701
  2. KEPPRA [Suspect]
     Indication: EPILEPSY
     Dosage: 1.5 G /D PO
     Route: 048
     Dates: start: 20070701
  3. DEBRIDAT [Concomitant]
  4. PROSTIGMIN [Concomitant]
  5. PARAFFINOLIE [Concomitant]

REACTIONS (2)
  - CONSTIPATION [None]
  - MEGACOLON [None]
